FAERS Safety Report 6475753-1 (Version None)
Quarter: 2009Q4

REPORT INFORMATION
  Report Type: 
  Country: None (occurrence: None)
  Receive Date: 20091204
  Receipt Date: 20091130
  Transmission Date: 20100525
  Serious: Yes (Other)
  Sender: FDA-Public Use
  Company Number: US-TEVA-214690USA

PATIENT
  Sex: Male

DRUGS (3)
  1. WARFARIN SODIUM [Suspect]
     Indication: ATRIAL FIBRILLATION
     Dates: start: 19900101
  2. CLOPIDOGREL [Suspect]
     Route: 048
     Dates: start: 20080101
  3. ACETYLSALICYLIC ACID [Suspect]
     Dates: start: 20060101

REACTIONS (2)
  - BLADDER CANCER [None]
  - HAEMATURIA [None]
